FAERS Safety Report 16832042 (Version 1)
Quarter: 2019Q3

REPORT INFORMATION
  Report Type: Spontaneous
  Country: US (occurrence: US)
  Receive Date: 20190920
  Receipt Date: 20190920
  Transmission Date: 20191005
  Serious: Yes (Hospitalization, Other)
  Sender: FDA-Public Use
  Company Number: US-DRREDDYS-USA/USA/19/0114232

PATIENT
  Age: 24 Year
  Sex: Male

DRUGS (20)
  1. RITUXIMAB. [Suspect]
     Active Substance: RITUXIMAB
     Indication: ACUTE LEUKAEMIA
     Dosage: DOSE-ADJUSTED
  2. HYDROCORTISONE. [Suspect]
     Active Substance: HYDROCORTISONE
     Indication: BURKITT^S LYMPHOMA STAGE IV
  3. METHOTREXATE. [Suspect]
     Active Substance: METHOTREXATE
     Indication: BURKITT^S LYMPHOMA STAGE IV
     Dosage: PROPHYLACTIC INTRATHECAL CHEMOTHERAPY
     Route: 037
  4. DOXORUBICIN HYDROCHLORIDE LIPOSOME INJECTION 20 MG/10 ML (2 MG/ML) AND [Suspect]
     Active Substance: DOXORUBICIN HYDROCHLORIDE
     Indication: ACUTE LEUKAEMIA
     Dosage: DOSE-ADJUSTED
  5. CYTARABINE. [Suspect]
     Active Substance: CYTARABINE
     Indication: ACUTE LEUKAEMIA
  6. VINCRISTINE [Suspect]
     Active Substance: VINCRISTINE
     Indication: ACUTE LEUKAEMIA
     Dosage: HE RECEIVED ONE CYCLE OF PART A
  7. CYTARABINE. [Suspect]
     Active Substance: CYTARABINE
     Indication: BURKITT^S LYMPHOMA STAGE IV
     Dosage: PROPHYLACTIC INTRATHECAL CHEMOTHERAPY
  8. PREDNISONE. [Suspect]
     Active Substance: PREDNISONE
     Indication: BURKITT^S LYMPHOMA STAGE IV
     Dosage: DOSE-ADJUSTED
  9. PREDNISONE. [Suspect]
     Active Substance: PREDNISONE
     Indication: ACUTE LEUKAEMIA
  10. ETOPOSIDE. [Suspect]
     Active Substance: ETOPOSIDE
     Indication: BURKITT^S LYMPHOMA STAGE IV
  11. CYCLOPHOSPHAMIDE. [Suspect]
     Active Substance: CYCLOPHOSPHAMIDE
     Indication: BURKITT^S LYMPHOMA STAGE IV
     Dosage: DOSE-ADJUSTED
  12. VINCRISTINE [Suspect]
     Active Substance: VINCRISTINE
     Indication: BURKITT^S LYMPHOMA STAGE IV
     Dosage: DOSE-ADJUSTED
  13. CYCLOPHOSPHAMIDE. [Suspect]
     Active Substance: CYCLOPHOSPHAMIDE
     Indication: ACUTE LEUKAEMIA
     Dosage: HYPER-FRACTIONATED CYCLOPHOSPHAMIDE, HE RECEIVED ONE CYCLE OF PART A
  14. DEXAMETHASONE SODIUM PHOSPHATE INJECTION, 4 MG/ML [Suspect]
     Active Substance: DEXAMETHASONE SODIUM PHOSPHATE
     Indication: BURKITT^S LYMPHOMA STAGE IV
  15. HYDROCORTISONE. [Suspect]
     Active Substance: HYDROCORTISONE
     Indication: ACUTE LEUKAEMIA
     Dosage: PROPHYLACTIC INTRATHECAL CHEMOTHERAPY
     Route: 037
  16. DEXAMETHASONE SODIUM PHOSPHATE INJECTION, 4 MG/ML [Suspect]
     Active Substance: DEXAMETHASONE SODIUM PHOSPHATE
     Indication: ACUTE LEUKAEMIA
     Dosage: HE RECEIVED ONE CYCLE OF PART A
  17. DOXORUBICIN HYDROCHLORIDE LIPOSOME INJECTION 20 MG/10 ML (2 MG/ML) AND [Suspect]
     Active Substance: DOXORUBICIN HYDROCHLORIDE
     Indication: BURKITT^S LYMPHOMA STAGE IV
     Dosage: HE RECEIVED ONE CYCLE OF PART A
  18. RITUXIMAB. [Suspect]
     Active Substance: RITUXIMAB
     Indication: BURKITT^S LYMPHOMA STAGE IV
  19. METHOTREXATE. [Suspect]
     Active Substance: METHOTREXATE
     Indication: ACUTE LEUKAEMIA
  20. ETOPOSIDE. [Suspect]
     Active Substance: ETOPOSIDE
     Indication: ACUTE LEUKAEMIA
     Dosage: DOSE-ADJUSTED

REACTIONS (2)
  - Tumour lysis syndrome [Unknown]
  - Acute kidney injury [Recovering/Resolving]
